FAERS Safety Report 5535081-5 (Version None)
Quarter: 2007Q4

REPORT INFORMATION
  Report Type: 
  Country: None (occurrence: None)
  Receive Date: 20071203
  Receipt Date: 20071119
  Transmission Date: 20080405
  Serious: Yes (Hospitalization, Other)
  Sender: FDA-Public Use
  Company Number: MEDI-0006184

PATIENT
  Age: 5 Month
  Sex: Female
  Weight: 3.705 kg

DRUGS (1)
  1. SYNAGIS [Suspect]
     Indication: ANTIVIRAL PROPHYLAXIS
     Dosage: 56 MG, INTRAMUSCULAR
     Route: 030
     Dates: start: 20071031, end: 20071031

REACTIONS (2)
  - CONVULSION [None]
  - METABOLIC DISORDER [None]
